FAERS Safety Report 5898228-7 (Version None)
Quarter: 2008Q3

REPORT INFORMATION
  Report Type: 
  Country: None (occurrence: None)
  Receive Date: 20080925
  Receipt Date: 20080917
  Transmission Date: 20090109
  Serious: Yes (Hospitalization, Other)
  Sender: FDA-Public Use
  Company Number: DE-JNJFOC-20080904227

PATIENT
  Age: 60 Year
  Sex: Male

DRUGS (2)
  1. TAVANIC [Suspect]
     Indication: LIVER ABSCESS
  2. TIGECYCLINE [Suspect]
     Indication: LIVER ABSCESS
     Route: 042

REACTIONS (6)
  - DRY SKIN [None]
  - ERYTHEMA [None]
  - OEDEMA PERIPHERAL [None]
  - RASH [None]
  - SKIN EXFOLIATION [None]
  - SKIN HYPERPIGMENTATION [None]
